FAERS Safety Report 7795493-6 (Version None)
Quarter: 2011Q4

REPORT INFORMATION
  Report Type: 
  Country: None (occurrence: None)
  Receive Date: 20111004
  Receipt Date: 20110928
  Transmission Date: 20120403
  Serious: Yes (Hospitalization, Other)
  Sender: FDA-Public Use
  Company Number: US-MERCK-1012USA02521

PATIENT
  Age: 52 Year
  Sex: Female
  Weight: 52 kg

DRUGS (9)
  1. FOSAMAX PLUS D [Suspect]
     Indication: OSTEOPENIA
     Route: 048
     Dates: start: 20060609, end: 20100707
  2. ALENDRONATE SODIUM [Suspect]
     Indication: OSTEOPENIA
     Route: 048
     Dates: start: 20091029, end: 20100408
  3. FOSAMAX [Suspect]
     Indication: OSTEOPOROSIS
     Route: 048
     Dates: start: 19991102, end: 20060501
  4. KEFLEX [Concomitant]
     Route: 065
     Dates: start: 20100119
  5. FOSAMAX [Suspect]
     Route: 048
     Dates: start: 20020701, end: 20060501
  6. FOSAMAX [Suspect]
     Indication: OSTEOPENIA
     Route: 048
     Dates: start: 19991102, end: 20060501
  7. VITAMIN D (UNSPECIFIED) [Concomitant]
     Route: 065
     Dates: start: 19870101
  8. FOSAMAX [Suspect]
     Route: 048
     Dates: start: 20020701, end: 20060501
  9. CALCIUM (UNSPECIFIED) [Concomitant]
     Route: 048
     Dates: start: 19870101

REACTIONS (49)
  - BLOOD POTASSIUM DECREASED [None]
  - HYPERLIPIDAEMIA [None]
  - TRICUSPID VALVE INCOMPETENCE [None]
  - MUSCLE STRAIN [None]
  - HYPOKALAEMIA [None]
  - DEPRESSION [None]
  - FEMUR FRACTURE [None]
  - INTERVERTEBRAL DISC PROTRUSION [None]
  - PAIN IN EXTREMITY [None]
  - TRANSIENT ISCHAEMIC ATTACK [None]
  - HYPERTENSION [None]
  - ADVERSE EVENT [None]
  - FALL [None]
  - ARTHRALGIA [None]
  - ATRIAL FIBRILLATION [None]
  - ATROPHY [None]
  - VULVOVAGINAL DRYNESS [None]
  - UTERINE PROLAPSE [None]
  - MENOPAUSE [None]
  - COCCYDYNIA [None]
  - DYSFUNCTIONAL UTERINE BLEEDING [None]
  - MYOFASCIAL PAIN SYNDROME [None]
  - MUSCLE SPASMS [None]
  - TOOTH DISORDER [None]
  - MUSCULOSKELETAL PAIN [None]
  - MITRAL VALVE INCOMPETENCE [None]
  - EXOSTOSIS [None]
  - HEADACHE [None]
  - FIBROMYALGIA [None]
  - SMEAR CERVIX ABNORMAL [None]
  - STRESS [None]
  - INTERVERTEBRAL DISC DEGENERATION [None]
  - BLOOD CHOLESTEROL INCREASED [None]
  - DEVICE FAILURE [None]
  - ROTATOR CUFF SYNDROME [None]
  - TOOTH DEPOSIT [None]
  - VULVA CYST [None]
  - MERALGIA PARAESTHETICA [None]
  - CERVICAL DYSPLASIA [None]
  - BACK PAIN [None]
  - GASTROOESOPHAGEAL REFLUX DISEASE [None]
  - BURSITIS [None]
  - ARTHRITIS [None]
  - LOW TURNOVER OSTEOPATHY [None]
  - HYPOMAGNESAEMIA [None]
  - LACERATION [None]
  - FIBROCYSTIC BREAST DISEASE [None]
  - FATIGUE [None]
  - SPINAL OSTEOARTHRITIS [None]
